FAERS Safety Report 25127455 (Version 1)
Quarter: 2025Q1

REPORT INFORMATION
  Report Type: Spontaneous
  Country: BR (occurrence: BR)
  Receive Date: 20250327
  Receipt Date: 20250327
  Transmission Date: 20250409
  Serious: No
  Sender: ORGANON
  Company Number: BR-ORGANON-O2503BRA001820

PATIENT
  Sex: Female

DRUGS (1)
  1. ETONOGESTREL [Suspect]
     Active Substance: ETONOGESTREL
     Route: 059

REACTIONS (4)
  - Implant site inflammation [Unknown]
  - Device placement issue [Recovered/Resolved]
  - Device expulsion [Recovered/Resolved]
  - Intentional medical device removal by patient [Unknown]
